FAERS Safety Report 25126212 (Version 1)
Quarter: 2025Q1

REPORT INFORMATION
  Report Type: Spontaneous
  Country: US (occurrence: US)
  Receive Date: 20250326
  Receipt Date: 20250326
  Transmission Date: 20250409
  Serious: No
  Sender: GALPHARM INTERNATIONAL
  Company Number: US-PERRIGO-25US000950

PATIENT

DRUGS (2)
  1. NASONEX [Suspect]
     Active Substance: MOMETASONE FUROATE
     Indication: Hypersensitivity
     Route: 045
     Dates: start: 202412, end: 202412
  2. NASONEX [Suspect]
     Active Substance: MOMETASONE FUROATE
     Route: 045
     Dates: start: 202401, end: 2024

REACTIONS (3)
  - Therapeutic product effect decreased [Unknown]
  - Expired product administered [Unknown]
  - Underdose [Unknown]

NARRATIVE: CASE EVENT DATE: 20240101
